FAERS Safety Report 23480417 (Version 1)
Quarter: 2024Q1

REPORT INFORMATION
  Report Type: Spontaneous
  Country: IT (occurrence: IT)
  Receive Date: 20240205
  Receipt Date: 20240205
  Transmission Date: 20240410
  Serious: Yes (Hospitalization)
  Sender: FDA-Public Use
  Company Number: None

PATIENT
  Age: 57 Year
  Sex: Male
  Weight: 69 kg

DRUGS (13)
  1. VALSARTAN [Suspect]
     Active Substance: VALSARTAN
     Indication: Hypertension
     Dosage: VALSARTAN 40 MG BID
     Route: 048
     Dates: start: 20231117, end: 20231119
  2. DOXAZOSIN [Concomitant]
     Active Substance: DOXAZOSIN MESYLATE
     Dosage: CARDURA 8MG BID, NO KNOWN MA HOLDER
     Route: 048
  3. LASIX [Concomitant]
     Active Substance: FUROSEMIDE
     Dosage: LASIX 125MG, 8AM-8PM
     Route: 048
  4. VERICIGUAT [Concomitant]
     Active Substance: VERICIGUAT
     Dosage: VERICIGUAT 1.25MG, 1CP HOURS 8
     Route: 048
  5. UMECLIDINIUM BROMIDE\VILANTEROL TRIFENATATE [Concomitant]
     Active Substance: UMECLIDINIUM BROMIDE\VILANTEROL TRIFENATATE
     Dosage: LAVENTAIR ELLIPTA 22/55MG, 1 INHALATION/DAY
     Route: 050
  6. LUVION [Concomitant]
     Dosage: LUVIOM 100MG, 1CP AT 8
     Route: 048
  7. DAPAGLIFLOZIN [Concomitant]
     Active Substance: DAPAGLIFLOZIN
     Dosage: FORXIGA 10MG, 1CP HOURS 8
     Route: 048
  8. CARVEDILOL [Concomitant]
     Active Substance: CARVEDILOL
     Dosage: DILATREND 25MG BID
     Route: 048
  9. ATORVASTATIN [Concomitant]
     Active Substance: ATORVASTATIN
     Route: 048
  10. ASPIRIN [Concomitant]
     Active Substance: ASPIRIN
     Dosage: CARDIOASPIRIN 100MG, 12 PM
     Route: 048
  11. AMLODIPINE [Concomitant]
     Active Substance: AMLODIPINE BESYLATE
     Dosage: AMLODIPINE 10MG, 1CP AT 8 PM
     Route: 048
  12. LOKELMA [Concomitant]
     Active Substance: SODIUM ZIRCONIUM CYCLOSILICATE
     Route: 048
  13. NITRODERM [Concomitant]
     Active Substance: NITROGLYCERIN
     Dosage: NITRODERM TSS 15MG 1 PATCH/DIE
     Route: 062

REACTIONS (1)
  - Acute kidney injury [Recovered/Resolved]

NARRATIVE: CASE EVENT DATE: 20231117
